FAERS Safety Report 9651166 (Version 3)
Quarter: 2014Q3

REPORT INFORMATION
  Report Type: Report from Study
  Country: US (occurrence: US)
  Receive Date: 20131029
  Receipt Date: 20140808
  Transmission Date: 20150326
  Serious: Yes (Death)
  Sender: FDA-Public Use
  Company Number: US-CELGENEUS-163-21880-13104937

PATIENT
  Age: 78 Year
  Sex: Male
  Weight: 67.6 kg

DRUGS (19)
  1. CALCITRIOL. [Concomitant]
     Active Substance: CALCITRIOL
     Indication: ADVERSE EVENT
     Route: 065
     Dates: start: 20120827
  2. SENNA [Concomitant]
     Active Substance: SENNA LEAF\SENNOSIDES\SENNOSIDES A AND B
     Indication: ADVERSE EVENT
     Route: 065
     Dates: start: 20120804
  3. REVLIMID [Suspect]
     Active Substance: LENALIDOMIDE
     Indication: PLASMA CELL MYELOMA
     Dosage: 10 MILLIGRAM
     Route: 048
     Dates: start: 20120806, end: 20120902
  4. DEXAMETHASONE. [Suspect]
     Active Substance: DEXAMETHASONE
     Indication: PLASMA CELL MYELOMA
     Dosage: 40 MILLIGRAM
     Route: 048
     Dates: start: 20130806, end: 20131021
  5. MILK OF MAGNESIA [Concomitant]
     Active Substance: MAGNESIUM HYDROXIDE
     Indication: ADVERSE EVENT
     Route: 065
     Dates: start: 20120801
  6. COLACE [Concomitant]
     Active Substance: DOCUSATE SODIUM
     Indication: ADVERSE EVENT
     Route: 065
     Dates: start: 20120804
  7. BENADRYL [Concomitant]
     Active Substance: DIPHENHYDRAMINE HYDROCHLORIDE
     Indication: ADVERSE EVENT
     Route: 065
     Dates: start: 20121001
  8. ATORVASTATIN [Concomitant]
     Active Substance: ATORVASTATIN
     Indication: ADVERSE EVENT
     Route: 065
     Dates: start: 20120823
  9. REVLIMID [Suspect]
     Active Substance: LENALIDOMIDE
     Dosage: 25 MILLIGRAM
     Route: 048
     Dates: start: 20120903, end: 20131021
  10. CALCIUM CARBONATE + VITAMIN D [Concomitant]
     Indication: PRODUCT USED FOR UNKNOWN INDICATION
     Dosage: 500MG/200MG
     Route: 065
     Dates: start: 20120703
  11. SMOOTH MOVE TEA [Concomitant]
     Indication: ADVERSE EVENT
     Route: 065
     Dates: start: 20120804
  12. ASPIRIN. [Concomitant]
     Active Substance: ASPIRIN
     Indication: PRODUCT USED FOR UNKNOWN INDICATION
     Route: 048
     Dates: start: 20120703
  13. FLUCONAZOLE. [Concomitant]
     Active Substance: FLUCONAZOLE
     Indication: ADVERSE EVENT
     Route: 065
     Dates: start: 20121001
  14. OMEPRAZOLE. [Concomitant]
     Active Substance: OMEPRAZOLE
     Indication: PRODUCT USED FOR UNKNOWN INDICATION
     Route: 065
     Dates: start: 20120716, end: 20120904
  15. ZOFRAN [Concomitant]
     Active Substance: ONDANSETRON HYDROCHLORIDE
     Indication: ADVERSE EVENT
     Route: 065
     Dates: start: 20120716
  16. COLCHICINE. [Concomitant]
     Active Substance: COLCHICINE
     Indication: PRODUCT USED FOR UNKNOWN INDICATION
     Route: 065
     Dates: start: 20120716
  17. LISINOPRIL. [Concomitant]
     Active Substance: LISINOPRIL
     Indication: ADVERSE EVENT
     Route: 065
     Dates: start: 20120716
  18. AMBIEN [Concomitant]
     Active Substance: ZOLPIDEM TARTRATE
     Indication: ADVERSE EVENT
     Route: 065
     Dates: start: 20120813
  19. ALLOPURINOL. [Concomitant]
     Active Substance: ALLOPURINOL
     Indication: PRODUCT USED FOR UNKNOWN INDICATION
     Route: 065
     Dates: start: 20130124

REACTIONS (1)
  - Death [Fatal]

NARRATIVE: CASE EVENT DATE: 20131021
